FAERS Safety Report 12351124 (Version 1)
Quarter: 2016Q2

REPORT INFORMATION
  Report Type: Spontaneous
  Country: DZ (occurrence: DZ)
  Receive Date: 20160510
  Receipt Date: 20160510
  Transmission Date: 20160815
  Serious: Yes (Other)
  Sender: FDA-Public Use
  Company Number: DZ-ABBVIE-16K-003-1623743-00

PATIENT
  Age: 42 Year
  Sex: Female
  Weight: 85 kg

DRUGS (1)
  1. HUMIRA [Suspect]
     Active Substance: ADALIMUMAB
     Indication: CROHN^S DISEASE
     Route: 058
     Dates: start: 2015, end: 2016

REACTIONS (4)
  - Night sweats [Unknown]
  - Pyrexia [Unknown]
  - Tuberculosis [Unknown]
  - Productive cough [Unknown]

NARRATIVE: CASE EVENT DATE: 201601
